FAERS Safety Report 9995872 (Version 1)
Quarter: 2014Q1

REPORT INFORMATION
  Report Type: Spontaneous
  Country: US (occurrence: None)
  Receive Date: 20140225
  Receipt Date: 20140225
  Transmission Date: 20141002
  Serious: Yes (Hospitalization, Other)
  Sender: FDA-Public Use
  Company Number: 1197972

PATIENT
  Age: 14 Year
  Sex: Female
  Weight: 25.3 kg

DRUGS (2)
  1. NUTROPIN [Suspect]
     Indication: TURNER^S SYNDROME
     Dates: start: 2006
  2. PREMARIN (ESTROGENS, CONJUGATED) [Concomitant]

REACTIONS (5)
  - Type 2 diabetes mellitus [None]
  - Cough [None]
  - Nasopharyngitis [None]
  - Nasal congestion [None]
  - Otorrhoea [None]
